FAERS Safety Report 21645054 (Version 2)
Quarter: 2022Q4

REPORT INFORMATION
  Report Type: Spontaneous
  Country: US (occurrence: US)
  Receive Date: 20221125
  Receipt Date: 20221130
  Transmission Date: 20230113
  Serious: Yes (Life-Threatening, Other)
  Sender: FDA-Public Use
  Company Number: US-TEVA-2022-US-2827545

PATIENT
  Sex: Female

DRUGS (4)
  1. LORAZEPAM [Suspect]
     Active Substance: LORAZEPAM
     Indication: Anxiety
     Route: 065
  2. LORAZEPAM [Suspect]
     Active Substance: LORAZEPAM
     Indication: Anxiety
     Route: 065
  3. NEFAZODONE HYDROCHLORIDE [Suspect]
     Active Substance: NEFAZODONE HYDROCHLORIDE
     Indication: Product used for unknown indication
  4. KLONOPIN [Concomitant]
     Active Substance: CLONAZEPAM
     Indication: Product used for unknown indication

REACTIONS (12)
  - Asthenia [Unknown]
  - Drug dependence [Unknown]
  - Panic attack [Unknown]
  - Vomiting [Unknown]
  - Abdominal discomfort [Unknown]
  - Insomnia [Unknown]
  - Drug ineffective [Unknown]
  - Withdrawal syndrome [Unknown]
  - Loss of personal independence in daily activities [Unknown]
  - Eating disorder [Unknown]
  - Illness [Unknown]
  - Product substitution issue [Unknown]
